FAERS Safety Report 19867325 (Version 1)
Quarter: 2021Q3

REPORT INFORMATION
  Report Type: Spontaneous
  Country: DE (occurrence: DE)
  Receive Date: 20210922
  Receipt Date: 20210922
  Transmission Date: 20211014
  Serious: Yes (Other)
  Sender: FDA-Public Use
  Company Number: NVSC2021DE211863

PATIENT
  Sex: Male

DRUGS (2)
  1. CIPROFLOXACIN. [Suspect]
     Active Substance: CIPROFLOXACIN
     Indication: PRODUCT USED FOR UNKNOWN INDICATION
     Route: 065
     Dates: start: 2018
  2. LEVOFLOXACIN. [Suspect]
     Active Substance: LEVOFLOXACIN
     Indication: URINARY TRACT INFECTION
     Route: 065
     Dates: start: 201412

REACTIONS (7)
  - Endocarditis [Recovering/Resolving]
  - Peyronie^s disease [Recovering/Resolving]
  - Arrhythmia [Recovering/Resolving]
  - Arthropathy [Not Recovered/Not Resolved]
  - Sarcoma [Recovered/Resolved]
  - Tendon discomfort [Not Recovered/Not Resolved]
  - Neoplasm [Recovered/Resolved]
